FAERS Safety Report 7703647-X (Version None)
Quarter: 2011Q3

REPORT INFORMATION
  Report Type: 
  Country: None (occurrence: None)
  Receive Date: 20110823
  Receipt Date: 20110811
  Transmission Date: 20111222
  Serious: Yes (Other)
  Sender: FDA-Public Use
  Company Number: NL-SANOFI-AVENTIS-2011SA048189

PATIENT
  Age: 71 Year
  Sex: Male
  Weight: 89 kg

DRUGS (4)
  1. ACENOCOUMAROL [Concomitant]
     Route: 065
  2. DRONEDARONE HCL [Suspect]
     Indication: ATRIAL FIBRILLATION
     Route: 048
     Dates: start: 20101027, end: 20110128
  3. BISOPROLOL FUMARATE [Concomitant]
     Route: 065
  4. TELMISARTAN [Concomitant]
     Route: 065

REACTIONS (1)
  - TRANSIENT ISCHAEMIC ATTACK [None]
